FAERS Safety Report 4358872-5 (Version None)
Quarter: 2004Q2

REPORT INFORMATION
  Report Type: 
  Country: None (occurrence: None)
  Receive Date: 20040512
  Receipt Date: 20040422
  Transmission Date: 20050107
  Serious: Yes (Death, Hospitalization, Other)
  Sender: FDA-Public Use
  Company Number: JP_040403046

PATIENT
  Age: 1 Day

DRUGS (1)
  1. VINCRISTINE SULFATE [Suspect]
     Indication: ADRENAL NEOPLASM
     Dosage: 0.5 MG/M2
     Route: 042

REACTIONS (6)
  - HAEMODIALYSIS [None]
  - HYPERKALAEMIA [None]
  - LACTIC ACIDOSIS [None]
  - POST PROCEDURAL COMPLICATION [None]
  - RESPIRATORY FAILURE [None]
  - SHOCK [None]
